FAERS Safety Report 10227872 (Version 2)
Quarter: 2014Q2

REPORT INFORMATION
  Report Type: Spontaneous
  Country: JP (occurrence: JP)
  Receive Date: 20140610
  Receipt Date: 20140620
  Transmission Date: 20141212
  Serious: Yes (Other)
  Sender: FDA-Public Use
  Company Number: JP-PFIZER INC-2014154508

PATIENT
  Age: 25 Year
  Sex: Female

DRUGS (3)
  1. PREMARIN [Suspect]
     Indication: MENSTRUATION IRREGULAR
     Dosage: UNK
     Route: 048
  2. HYSRON [Concomitant]
  3. CLOMIFENE [Concomitant]

REACTIONS (3)
  - Lower limb fracture [Unknown]
  - Pseudarthrosis [Unknown]
  - Off label use [Unknown]
